FAERS Safety Report 21845605 (Version 1)
Quarter: 2023Q1

REPORT INFORMATION
  Report Type: Spontaneous
  Country: GB (occurrence: GB)
  Receive Date: 20230111
  Receipt Date: 20230111
  Transmission Date: 20230418
  Serious: Yes (Hospitalization, Other)
  Sender: FDA-Public Use
  Company Number: GB-MHRA-MED-202301060925232090-VGNLZ

PATIENT
  Sex: Male
  Weight: 89 kg

DRUGS (2)
  1. VENETOCLAX [Suspect]
     Active Substance: VENETOCLAX
     Indication: Chronic lymphocytic leukaemia
     Dosage: STARTED 20MG OD, INCREASED GRADUALLY TO 400MG OD
     Route: 048
     Dates: start: 20221115
  2. OBINUTUZUMAB [Concomitant]
     Active Substance: OBINUTUZUMAB
     Indication: Product used for unknown indication
     Dates: start: 20221025

REACTIONS (2)
  - Pleural effusion [Unknown]
  - Hypoxia [Unknown]

NARRATIVE: CASE EVENT DATE: 20221220
